FAERS Safety Report 14566434 (Version 1)
Quarter: 2018Q1

REPORT INFORMATION
  Report Type: Spontaneous
  Country: FR (occurrence: FR)
  Receive Date: 20180223
  Receipt Date: 20180223
  Transmission Date: 20180509
  Serious: Yes (Life-Threatening)
  Sender: FDA-Public Use
  Company Number: FR-JNJFOC-20180229851

PATIENT
  Age: 72 Year
  Sex: Male
  Weight: 49 kg

DRUGS (1)
  1. IMBRUVICA [Suspect]
     Active Substance: IBRUTINIB
     Indication: LYMPHOMA
     Route: 048
     Dates: end: 20170912

REACTIONS (2)
  - Thrombocytopenia [Recovered/Resolved]
  - Lung disorder [Recovering/Resolving]

NARRATIVE: CASE EVENT DATE: 201709
